FAERS Safety Report 12408845 (Version 2)
Quarter: 2016Q4

REPORT INFORMATION
  Report Type: Report from Study
  Country: US (occurrence: US)
  Receive Date: 20160526
  Receipt Date: 20161026
  Transmission Date: 20170207
  Serious: Yes (Other)
  Sender: FDA-Public Use
  Company Number: US-JNJFOC-20160523907

PATIENT
  Age: 69 Year
  Sex: Female
  Weight: 105 kg

DRUGS (23)
  1. ACYCLOVIR. [Concomitant]
     Active Substance: ACYCLOVIR
     Route: 048
  2. CYCLOSPORIN [Concomitant]
     Active Substance: CYCLOSPORINE
  3. LINUM USITATISSIMUM SEED OIL [Concomitant]
  4. POTASSIUM CHLORIDE. [Concomitant]
     Active Substance: POTASSIUM CHLORIDE
  5. BACTRIM [Concomitant]
     Active Substance: SULFAMETHOXAZOLE\TRIMETHOPRIM
  6. ATORVASTATIN [Concomitant]
     Active Substance: ATORVASTATIN
     Route: 048
  7. CALCIUM [Concomitant]
     Active Substance: CALCIUM
     Route: 048
  8. COENZYME Q10 [Concomitant]
     Active Substance: UBIDECARENONE
     Route: 048
  9. EFINACONAZOLE [Concomitant]
     Active Substance: EFINACONAZOLE
  10. IMBRUVICA [Suspect]
     Active Substance: IBRUTINIB
     Indication: CHRONIC LYMPHOCYTIC LEUKAEMIA
     Route: 065
     Dates: start: 20131222
  11. BIOTIN [Concomitant]
     Active Substance: BIOTIN
     Route: 048
  12. LUTEIN [Concomitant]
     Active Substance: LUTEIN
     Route: 048
  13. VITAMIN B12 [Concomitant]
     Active Substance: CYANOCOBALAMIN
     Route: 048
  14. GABAPENTIN. [Concomitant]
     Active Substance: GABAPENTIN
  15. ZINC [Concomitant]
     Active Substance: ZINC\ZINC CHLORIDE
     Route: 048
  16. FOLIC ACID. [Concomitant]
     Active Substance: FOLIC ACID
  17. FISH OIL [Concomitant]
     Active Substance: FISH OIL
     Route: 048
  18. VITAMIN B-6 [Concomitant]
     Active Substance: PYRIDOXINE
     Route: 048
  19. LOTREL [Concomitant]
     Active Substance: AMLODIPINE BESYLATE\BENAZEPRIL HYDROCHLORIDE
     Route: 048
  20. MAGNESIUM [Concomitant]
     Active Substance: MAGNESIUM
     Route: 048
  21. FUROSEMIDE. [Concomitant]
     Active Substance: FUROSEMIDE
     Route: 048
  22. GLUCOSAMINE + CHONDROITIN [Concomitant]
     Active Substance: CHONDROITIN SULFATE (BOVINE)\GLUCOSAMINE HYDROCHLORIDE
  23. VITAMIN D3 [Concomitant]
     Active Substance: CHOLECALCIFEROL
     Dosage: 2000 UNIT, QD
     Route: 048

REACTIONS (2)
  - Diabetes mellitus [Recovering/Resolving]
  - Pain in extremity [Unknown]

NARRATIVE: CASE EVENT DATE: 201604
